FAERS Safety Report 7586798-2 (Version None)
Quarter: 2011Q3

REPORT INFORMATION
  Report Type: 
  Country: None (occurrence: None)
  Receive Date: 20110701
  Receipt Date: 20110616
  Transmission Date: 20111222
  Serious: Yes (Other)
  Sender: FDA-Public Use
  Company Number: HR-WATSON-2011-09585

PATIENT
  Sex: Female

DRUGS (8)
  1. PROMAZINE [Suspect]
     Indication: PSYCHIATRIC SYMPTOM
     Dosage: 100 MG, UNK
  2. RISPERIDONE [Suspect]
     Indication: PSYCHIATRIC SYMPTOM
     Dosage: 6 MG, DAILY
  3. QUETIAPINE [Suspect]
     Indication: DELUSIONAL DISORDER, UNSPECIFIED TYPE
     Dosage: 500 MG, UNK
  4. LAMOTRIGINE [Suspect]
     Indication: PSYCHIATRIC SYMPTOM
     Dosage: 100 MG, UNK
  5. DIAZEPAM [Suspect]
     Indication: PSYCHIATRIC SYMPTOM
     Dosage: 5 MG, UNK
  6. SULPYRIDE [Suspect]
     Indication: PSYCHIATRIC SYMPTOM
     Dosage: 100 MG, UNK
  7. OLANZAPINE (UNKNOWN) [Suspect]
     Indication: DELUSIONAL DISORDER, UNSPECIFIED TYPE
     Dosage: 15 MG, DAILY
     Dates: start: 20090401
  8. ALPRAZOLAM [Suspect]
     Indication: PSYCHIATRIC SYMPTOM
     Dosage: 0.75 MG, UNK

REACTIONS (7)
  - BLOOD CHOLESTEROL INCREASED [None]
  - PSYCHOMOTOR RETARDATION [None]
  - SOMNOLENCE [None]
  - WEIGHT INCREASED [None]
  - BLOOD GLUCOSE INCREASED [None]
  - BLOOD THYROID STIMULATING HORMONE INCREASED [None]
  - DRUG INEFFECTIVE [None]
